FAERS Safety Report 8325376-4 (Version None)
Quarter: 2012Q2

REPORT INFORMATION
  Report Type: 
  Country: None (occurrence: None)
  Receive Date: 20120501
  Receipt Date: 20100415
  Transmission Date: 20120825
  Serious: No
  Sender: FDA-Public Use
  Company Number: US-TEVA-2010002219

PATIENT
  Age: 65 Year
  Sex: Female
  Weight: 72.64 kg

DRUGS (5)
  1. CADUET [Concomitant]
  2. ASPIRIN [Concomitant]
  3. NUVIGIL [Suspect]
     Indication: SOMNOLENCE
     Dosage: 150 MILLIGRAM;
     Route: 048
     Dates: start: 20090901
  4. BENICAR HCT [Concomitant]
  5. ALIGN PROBIOTIC [Concomitant]

REACTIONS (1)
  - BLEPHAROSPASM [None]
